FAERS Safety Report 8421016-4 (Version None)
Quarter: 2012Q2

REPORT INFORMATION
  Report Type: 
  Country: None (occurrence: None)
  Receive Date: 20120604
  Receipt Date: 20120604
  Transmission Date: 20120825
  Serious: Yes (Hospitalization)
  Sender: FDA-Public Use
  Company Number: None

PATIENT
  Age: 74 Year
  Sex: Female
  Weight: 75 kg

DRUGS (1)
  1. PHENAZOPYRIDINE HCL TAB [Suspect]
     Indication: BLADDER PAIN
     Dosage: 200 MG TID PO
     Route: 048

REACTIONS (6)
  - METHAEMOGLOBINAEMIA [None]
  - HYPERKALAEMIA [None]
  - RENAL FAILURE ACUTE [None]
  - DISEASE PROGRESSION [None]
  - DYSPNOEA [None]
  - HAEMOLYTIC ANAEMIA [None]
